FAERS Safety Report 5867774-4 (Version None)
Quarter: 2008Q3

REPORT INFORMATION
  Report Type: 
  Country: None (occurrence: None)
  Receive Date: 20080902
  Receipt Date: 20080303
  Transmission Date: 20090109
  Serious: No
  Sender: FDA-Public Use
  Company Number: US-ABBOTT-08P-163-0440875-00

PATIENT
  Sex: Female
  Weight: 57.658 kg

DRUGS (1)
  1. DEPAKOTE [Suspect]
     Indication: POST-TRAUMATIC STRESS DISORDER
     Route: 048
     Dates: end: 20080101

REACTIONS (7)
  - DECREASED INTEREST [None]
  - DYSPNOEA [None]
  - HEADACHE [None]
  - HYPERPHAGIA [None]
  - HYPERSOMNIA [None]
  - SELF ESTEEM DECREASED [None]
  - WEIGHT INCREASED [None]
